FAERS Safety Report 13476254 (Version 2)
Quarter: 2017Q2

REPORT INFORMATION
  Report Type: Spontaneous
  Country: US (occurrence: US)
  Receive Date: 20170425
  Receipt Date: 20170511
  Transmission Date: 20170830
  Serious: Yes (Other)
  Sender: FDA-Public Use
  Company Number: US-WEST-WARD PHARMACEUTICALS CORP.-US-H14001-17-01167

PATIENT
  Sex: Male
  Weight: 73.55 kg

DRUGS (4)
  1. PROSCAR [Concomitant]
     Active Substance: FINASTERIDE
     Indication: PRODUCT USED FOR UNKNOWN INDICATION
     Route: 065
  2. FLUTICASONE. [Suspect]
     Active Substance: FLUTICASONE
     Indication: PROPHYLAXIS
     Route: 045
     Dates: start: 201605, end: 201702
  3. FLUTICASONE. [Suspect]
     Active Substance: FLUTICASONE
     Route: 045
     Dates: start: 20170324
  4. HYTRIN [Concomitant]
     Active Substance: TERAZOSIN HYDROCHLORIDE
     Indication: PRODUCT USED FOR UNKNOWN INDICATION
     Route: 065

REACTIONS (4)
  - Mouth haemorrhage [Not Recovered/Not Resolved]
  - Stomatitis [Not Recovered/Not Resolved]
  - Coating in mouth [Not Recovered/Not Resolved]
  - Off label use [Not Recovered/Not Resolved]

NARRATIVE: CASE EVENT DATE: 2016
